FAERS Safety Report 5832527-X (Version None)
Quarter: 2008Q3

REPORT INFORMATION
  Report Type: 
  Country: None (occurrence: None)
  Receive Date: 20080731
  Receipt Date: 20080723
  Transmission Date: 20090109
  Serious: Yes (Hospitalization)
  Sender: FDA-Public Use
  Company Number: GXKR2008JP06938

PATIENT
  Age: 51 Year
  Sex: Female

DRUGS (7)
  1. METHOTREXATE [Suspect]
     Indication: STILL'S DISEASE ADULT ONSET
     Dosage: 6 MG/WEEK,; 15 MG/WEEK
  2. INDOMETHACIN [Suspect]
     Indication: STILL'S DISEASE ADULT ONSET
     Dosage: 75 MG/DAY,
  3. DEXAMETHASONE TAB [Concomitant]
  4. DEXAMETHASONE TAB [Concomitant]
  5. PREDNISOLONE TAB [Concomitant]
  6. BETAMETHASONE [Concomitant]
  7. METHYLPREDNISOLONE [Concomitant]

REACTIONS (6)
  - COAGULOPATHY [None]
  - DISEASE RECURRENCE [None]
  - FATIGUE [None]
  - HEPATIC FAILURE [None]
  - HISTIOCYTOSIS HAEMATOPHAGIC [None]
  - STILL'S DISEASE ADULT ONSET [None]
